FAERS Safety Report 16204393 (Version 6)
Quarter: 2021Q4

REPORT INFORMATION
  Report Type: Spontaneous
  Country: DE (occurrence: DE)
  Receive Date: 20190416
  Receipt Date: 20211207
  Transmission Date: 20220303
  Serious: Yes (Other)
  Sender: FDA-Public Use
  Company Number: PHHY2019DE084619

PATIENT
  Sex: Female

DRUGS (4)
  1. ENTRESTO [Suspect]
     Active Substance: SACUBITRIL\VALSARTAN
     Indication: Cardiac failure
     Dosage: 50 MG, UNKNOWN (1-0-1)
     Route: 065
     Dates: start: 201904
  2. METAMIZOLE [Concomitant]
     Active Substance: METAMIZOLE
     Indication: Osteoarthritis
     Dosage: UNK
     Route: 065
  3. HYDROCHLOROTHIAZIDE [Concomitant]
     Active Substance: HYDROCHLOROTHIAZIDE
     Indication: Cardiac failure
     Dosage: UNK
     Route: 065
  4. PRADAXA [Concomitant]
     Active Substance: DABIGATRAN ETEXILATE MESYLATE
     Indication: Product used for unknown indication
     Dosage: UNK
     Route: 065

REACTIONS (6)
  - Blood glucose abnormal [Recovering/Resolving]
  - Hypotension [Recovering/Resolving]
  - Malaise [Unknown]
  - Palpitations [Recovering/Resolving]
  - Blood glucose fluctuation [Unknown]
  - Dizziness [Recovering/Resolving]
